FAERS Safety Report 13115777 (Version 1)
Quarter: 2017Q1

REPORT INFORMATION
  Report Type: Spontaneous
  Country: US (occurrence: US)
  Receive Date: 20170115
  Receipt Date: 20170115
  Transmission Date: 20170428
  Serious: Yes (Death)
  Sender: FDA-Public Use
  Company Number: US-ALVOGEN-2017-ALVOGEN-090952

PATIENT
  Age: 50 Year
  Sex: Female

DRUGS (7)
  1. OXYCODONE [Suspect]
     Active Substance: OXYCODONE
     Indication: SUICIDE ATTEMPT
     Route: 048
  2. OXYCODONE [Suspect]
     Active Substance: OXYCODONE
     Indication: SUICIDE ATTEMPT
     Route: 048
  3. OXYMORPHONE [Suspect]
     Active Substance: OXYMORPHONE
     Indication: SUICIDE ATTEMPT
     Route: 048
  4. DIAZEPAM. [Suspect]
     Active Substance: DIAZEPAM
     Indication: SUICIDE ATTEMPT
     Route: 048
  5. TOPIRAMATE. [Suspect]
     Active Substance: TOPIRAMATE
     Indication: SUICIDE ATTEMPT
     Route: 048
  6. DIPHENHYDRAMINE. [Suspect]
     Active Substance: DIPHENHYDRAMINE
     Indication: SUICIDE ATTEMPT
     Route: 048
  7. ACETAMINOPHEN. [Suspect]
     Active Substance: ACETAMINOPHEN
     Indication: SUICIDE ATTEMPT
     Route: 048

REACTIONS (1)
  - Completed suicide [Fatal]
